FAERS Safety Report 12957596 (Version 2)
Quarter: 2017Q1

REPORT INFORMATION
  Report Type: Report from Study
  Country: None (occurrence: US)
  Receive Date: 20161118
  Receipt Date: 20170110
  Transmission Date: 20170428
  Serious: Yes (Death, Hospitalization)
  Sender: FDA-Public Use
  Company Number: US-ABBVIE-16K-163-1785758-00

PATIENT
  Age: 76 Year
  Sex: Male

DRUGS (1)
  1. CREON [Suspect]
     Active Substance: PANCRELIPASE AMYLASE\PANCRELIPASE LIPASE\PANCRELIPASE PROTEASE
     Indication: PRODUCT USED FOR UNKNOWN INDICATION
     Route: 048
     Dates: start: 20150819

REACTIONS (8)
  - Asthenia [Unknown]
  - Dementia [Fatal]
  - Bladder cancer [Fatal]
  - Thrombosis [Unknown]
  - Feeding disorder [Unknown]
  - Pneumonia [Fatal]
  - Anaemia [Unknown]
  - Oedema [Unknown]

NARRATIVE: CASE EVENT DATE: 201607
